FAERS Safety Report 14389840 (Version 3)
Quarter: 2022Q1

REPORT INFORMATION
  Report Type: Spontaneous
  Country: JP (occurrence: JP)
  Receive Date: 20180115
  Receipt Date: 20220121
  Transmission Date: 20220423
  Serious: Yes (Other)
  Sender: FDA-Public Use
  Company Number: PHJP2018JP000841

PATIENT
  Age: 16 Year
  Sex: Male

DRUGS (1)
  1. GLIVEC [Suspect]
     Active Substance: IMATINIB MESYLATE
     Indication: B precursor type acute leukaemia
     Dosage: 400 MG, UNK
     Route: 048
     Dates: start: 20160722, end: 20170411

REACTIONS (6)
  - Liver abscess [Recovered/Resolved]
  - Candida infection [Recovered/Resolved]
  - Weight increased [Recovering/Resolving]
  - Full blood count decreased [Unknown]
  - Ascites [Unknown]
  - Pyrexia [Recovered/Resolved]

NARRATIVE: CASE EVENT DATE: 20160729
